FAERS Safety Report 6678960-8 (Version None)
Quarter: 2010Q2

REPORT INFORMATION
  Report Type: 
  Country: None (occurrence: None)
  Receive Date: 20100413
  Receipt Date: 20100331
  Transmission Date: 20101027
  Serious: Yes (Death)
  Sender: FDA-Public Use
  Company Number: TR-GENZYME-POMP-1000903

PATIENT
  Sex: Female
  Weight: 5 kg

DRUGS (1)
  1. MYOZYME [Suspect]
     Indication: GLYCOGEN STORAGE DISEASE TYPE II
     Dosage: 20 MG/KG, Q2W
     Route: 042
     Dates: start: 20100303

REACTIONS (2)
  - HYPERTROPHIC CARDIOMYOPATHY [None]
  - PNEUMONIA [None]
